FAERS Safety Report 5663529-4 (Version None)
Quarter: 2008Q1

REPORT INFORMATION
  Report Type: 
  Country: None (occurrence: None)
  Receive Date: 20080307
  Receipt Date: 20080222
  Transmission Date: 20080703
  Serious: Yes (Hospitalization, Other)
  Sender: FDA-Public Use
  Company Number: 2008S1000890

PATIENT
  Age: 51 Year
  Sex: Male
  Weight: 62.5964 kg

DRUGS (7)
  1. CLOZAPINE [Suspect]
     Indication: BIPOLAR DISORDER
     Dosage: 50 MG;EVERY MORNING; ORAL
     Route: 048
     Dates: start: 20071212, end: 20080109
  2. CLOZAPINE [Suspect]
     Indication: SCHIZOAFFECTIVE DISORDER
     Dosage: 50 MG;EVERY MORNING; ORAL
     Route: 048
     Dates: start: 20071212, end: 20080109
  3. CLOZAPINE [Suspect]
     Indication: SCHIZOAFFECTIVE DISORDER
     Dosage: 100 MG;EVERY MORNING;ORAL : 300 MG;AT BEDTIME;ORAL
     Route: 048
     Dates: start: 20071212, end: 20080109
  4. CLOZAPINE [Suspect]
     Indication: SCHIZOAFFECTIVE DISORDER
     Dosage: 100 MG;EVERY MORNING;ORAL : 300 MG;AT BEDTIME;ORAL
     Route: 048
     Dates: start: 20071212, end: 20080109
  5. LORAZEPAM [Concomitant]
  6. FLUPHENAZINE [Concomitant]
  7. DIVALPROEX SODIUM [Concomitant]

REACTIONS (1)
  - AGRANULOCYTOSIS [None]
